FAERS Safety Report 6087434-7 (Version None)
Quarter: 2009Q1

REPORT INFORMATION
  Report Type: 
  Country: None (occurrence: None)
  Receive Date: 20090223
  Receipt Date: 20090216
  Transmission Date: 20090719
  Serious: Yes (Death)
  Sender: FDA-Public Use
  Company Number: MY-MERCK-0902MYS00015

PATIENT
  Age: 27 Year
  Sex: Male

DRUGS (5)
  1. PRIMAXIN [Suspect]
     Indication: PSEUDOMONAS PSEUDOMALLEI INFECTION
     Route: 041
  2. DIFLUCAN [Suspect]
     Indication: OROPHARYNGEAL CANDIDIASIS
     Route: 042
  3. ZITHROMAX [Suspect]
     Indication: PNEUMONIA
     Route: 042
  4. RANITIDINE [Concomitant]
     Route: 065
  5. HYDROCORTISONE [Concomitant]
     Route: 065

REACTIONS (3)
  - ALANINE AMINOTRANSFERASE INCREASED [None]
  - ASPARTATE AMINOTRANSFERASE INCREASED [None]
  - BLOOD ALKALINE PHOSPHATASE INCREASED [None]
